FAERS Safety Report 19372590 (Version 1)
Quarter: 2021Q2

REPORT INFORMATION
  Report Type: Spontaneous
  Country: GB (occurrence: GB)
  Receive Date: 20210603
  Receipt Date: 20210603
  Transmission Date: 20210717
  Serious: Yes (Other)
  Sender: FDA-Public Use
  Company Number: GB-ELI_LILLY_AND_COMPANY-GB202105013117

PATIENT
  Age: 53 Year
  Sex: Female

DRUGS (1)
  1. ZYPREXA [Suspect]
     Active Substance: OLANZAPINE
     Indication: SCHIZOPHRENIA
     Dosage: UNK UNK, UNKNOWN
     Route: 065

REACTIONS (10)
  - Musculoskeletal stiffness [Unknown]
  - Increased appetite [Unknown]
  - Memory impairment [Unknown]
  - Constipation [Unknown]
  - Irritability [Unknown]
  - Sexual dysfunction [Unknown]
  - Sedation [Unknown]
  - Somnolence [Unknown]
  - Amnesia [Unknown]
  - Abnormal weight gain [Unknown]
